FAERS Safety Report 23443241 (Version 1)
Quarter: 2024Q1

REPORT INFORMATION
  Report Type: Other
  Country: PK (occurrence: None)
  Receive Date: 20240125
  Receipt Date: 20240125
  Transmission Date: 20240410
  Serious: Yes (Death)
  Sender: FDA-Public Use
  Company Number: PK-ROCHE-3384168

PATIENT
  Age: 83 Year
  Sex: Male

DRUGS (2)
  1. TECENTRIQ [Suspect]
     Active Substance: ATEZOLIZUMAB
     Indication: Hepatocellular carcinoma
     Route: 041
     Dates: start: 20230214
  2. AVASTIN [Suspect]
     Active Substance: BEVACIZUMAB
     Indication: Hepatocellular carcinoma
     Route: 041
     Dates: start: 20230214

REACTIONS (2)
  - Neoplasm malignant [Fatal]
  - Protein total decreased [Unknown]

NARRATIVE: CASE EVENT DATE: 20230620
